FAERS Safety Report 22098270 (Version 1)
Quarter: 2023Q1

REPORT INFORMATION
  Report Type: Report from Study
  Country: US (occurrence: US)
  Receive Date: 20230315
  Receipt Date: 20230315
  Transmission Date: 20230417
  Serious: Yes (Hospitalization)
  Sender: FDA-Public Use
  Company Number: US-UCBSA-2019049566

PATIENT
  Age: 57 Year
  Sex: Male
  Weight: 106.59 kg

DRUGS (6)
  1. LEVETIRACETAM [Suspect]
     Active Substance: LEVETIRACETAM
     Indication: Seizure
     Dosage: UNK
     Route: 048
     Dates: start: 2005
  2. LEVETIRACETAM [Suspect]
     Active Substance: LEVETIRACETAM
     Indication: Epilepsy
     Dosage: 2000 MILLIGRAM, 2X/DAY (BID)
     Route: 048
     Dates: start: 201504, end: 20190522
  3. LEVETIRACETAM [Suspect]
     Active Substance: LEVETIRACETAM
     Dosage: 500MG 1 TAB IN AM AND 2 TAB IN PM
     Route: 048
     Dates: start: 20190523
  4. NAYZILAM [Suspect]
     Active Substance: MIDAZOLAM
     Indication: Product used for unknown indication
  5. LAMOTRIGINE [Concomitant]
     Active Substance: LAMOTRIGINE
     Indication: Seizure
     Dosage: 200 MILLIGRAM, 2X/DAY (BID)
     Route: 048
     Dates: start: 1999
  6. CITALOPRAM [Concomitant]
     Active Substance: CITALOPRAM HYDROBROMIDE
     Indication: Anger
     Dosage: UNK

REACTIONS (5)
  - Seizure [Recovered/Resolved]
  - Coronary artery disease [Not Recovered/Not Resolved]
  - Product prescribing issue [Unknown]
  - Prescribed overdose [Unknown]
  - Product substitution issue [Unknown]

NARRATIVE: CASE EVENT DATE: 20150401
